FAERS Safety Report 8111396-1 (Version None)
Quarter: 2012Q1

REPORT INFORMATION
  Report Type: 
  Country: None (occurrence: None)
  Receive Date: 20120203
  Receipt Date: 20111107
  Transmission Date: 20120608
  Serious: No
  Sender: FDA-Public Use
  Company Number: US-GLAXOSMITHKLINE-A0952177A

PATIENT
  Age: 62 Year
  Sex: Female

DRUGS (5)
  1. CALCIUM [Concomitant]
  2. FISH OIL [Concomitant]
  3. HRT [Concomitant]
  4. LAMOTRIGINE [Suspect]
     Indication: DEPRESSION
     Dosage: 100MG PER DAY
     Route: 048
     Dates: start: 20061101
  5. MULTI-VITAMIN [Concomitant]

REACTIONS (1)
  - OSTEOPENIA [None]
